FAERS Safety Report 8963063 (Version 2)
Quarter: 2012Q4

REPORT INFORMATION
  Report Type: 
  Country: US (occurrence: US)
  Receive Date: 20121213
  Receipt Date: 20121218
  Transmission Date: 20130627
  Serious: Yes (Other)
  Sender: FDA-Public Use
  Company Number: US-PFIZER INC-2012314346

PATIENT
  Age: 59 Year
  Sex: Male
  Weight: 79.37 kg

DRUGS (11)
  1. ALPRAZOLAM [Suspect]
     Indication: PANIC ATTACKS
     Dosage: 2 mg, every 8 hours
     Route: 048
     Dates: start: 201112
  2. ALPRAZOLAM [Suspect]
     Indication: ANXIETY
  3. FINASTERIDE [Concomitant]
     Indication: ENLARGED PROSTATE
     Dosage: UNK
  4. FLOMAX [Concomitant]
     Indication: ENLARGED PROSTATE
     Dosage: UNK
  5. METOPROLOL [Concomitant]
     Indication: BLOOD PRESSURE HIGH
     Dosage: UNK
  6. MS-CONTIN [Concomitant]
     Indication: NEUROPATHY PERIPHERAL
     Dosage: UNK
  7. MS-CONTIN [Concomitant]
     Indication: PAIN IN HIP
  8. MS-CONTIN [Concomitant]
     Indication: BONE PAIN
  9. OXYCODONE [Concomitant]
     Indication: NEUROPATHY PERIPHERAL
     Dosage: 30 mg, UNK
  10. OXYCODONE [Concomitant]
     Indication: PAIN IN HIP
  11. OXYCODONE [Concomitant]
     Indication: BONE PAIN

REACTIONS (4)
  - Idiopathic thrombocytopenic purpura [Not Recovered/Not Resolved]
  - Epistaxis [Recovered/Resolved]
  - Platelet count abnormal [Not Recovered/Not Resolved]
  - Drug ineffective [Unknown]
